FAERS Safety Report 6494109-9 (Version None)
Quarter: 2009Q4

REPORT INFORMATION
  Report Type: 
  Country: None (occurrence: None)
  Receive Date: 20091214
  Receipt Date: 20090217
  Transmission Date: 20100525
  Serious: No
  Sender: FDA-Public Use
  Company Number: US-BRISTOL-MYERS SQUIBB COMPANY-14460307

PATIENT
  Age: 45 Year
  Sex: Female

DRUGS (2)
  1. ABILIFY [Suspect]
     Indication: BIPOLAR DISORDER
     Route: 048
     Dates: start: 20081003
  2. LAMICTAL [Suspect]
     Route: 048

REACTIONS (2)
  - BLOOD PROLACTIN INCREASED [None]
  - GALACTORRHOEA [None]
